FAERS Safety Report 23985049 (Version 3)
Quarter: 2024Q3

REPORT INFORMATION
  Report Type: Spontaneous
  Country: US (occurrence: US)
  Receive Date: 20240618
  Receipt Date: 20240704
  Transmission Date: 20241017
  Serious: No
  Sender: LEO PHARM
  Company Number: US-LEO Pharma-371189

PATIENT
  Age: 79 Year
  Sex: Male

DRUGS (12)
  1. ADBRY [Suspect]
     Active Substance: TRALOKINUMAB-LDRM
     Indication: Eczema
     Dosage: 4 INJECTIONS FOR THE INITIAL DOSE
     Route: 058
     Dates: start: 20231126, end: 20240524
  2. ADBRY [Suspect]
     Active Substance: TRALOKINUMAB-LDRM
     Indication: Eczema
     Dosage: 4 INJECTIONS FOR THE INITIAL DOSE
     Route: 058
     Dates: start: 20231126, end: 20240524
  3. ADBRY [Suspect]
     Active Substance: TRALOKINUMAB-LDRM
     Indication: Eczema
     Dosage: 4 INJECTIONS FOR THE INITIAL DOSE
     Route: 058
     Dates: start: 20231126, end: 20240524
  4. ADBRY [Suspect]
     Active Substance: TRALOKINUMAB-LDRM
     Indication: Eczema
     Dosage: 2 INJECTIONS EVERY TWO WEEKS
     Route: 058
  5. ADBRY [Suspect]
     Active Substance: TRALOKINUMAB-LDRM
     Indication: Eczema
     Dosage: 2 INJECTIONS EVERY TWO WEEKS
     Route: 058
  6. ADBRY [Suspect]
     Active Substance: TRALOKINUMAB-LDRM
     Indication: Eczema
     Dosage: 2 INJECTIONS EVERY TWO WEEKS
     Route: 058
  7. ADBRY [Suspect]
     Active Substance: TRALOKINUMAB-LDRM
     Indication: Eczema
     Dosage: ON AN UNKNOWN DATE IN FEB-2024 2 INJECTIONS EVERY FOUR WEEKS
     Route: 058
  8. ADBRY [Suspect]
     Active Substance: TRALOKINUMAB-LDRM
     Indication: Eczema
     Dosage: ON AN UNKNOWN DATE IN FEB-2024 2 INJECTIONS EVERY FOUR WEEKS
     Route: 058
  9. ADBRY [Suspect]
     Active Substance: TRALOKINUMAB-LDRM
     Indication: Eczema
     Dosage: ON AN UNKNOWN DATE IN FEB-2024 2 INJECTIONS EVERY FOUR WEEKS
     Route: 058
  10. ADBRY [Suspect]
     Active Substance: TRALOKINUMAB-LDRM
     Indication: Eczema
     Dosage: 2 INJECTIONS EVERY 3 WEEKS LAST INJECTION WAS 24-MAY-2024 AND HAD NO INJECTIONS SINCE THEN
     Route: 058
  11. ADBRY [Suspect]
     Active Substance: TRALOKINUMAB-LDRM
     Indication: Eczema
     Dosage: 2 INJECTIONS EVERY 3 WEEKS LAST INJECTION WAS 24-MAY-2024 AND HAD NO INJECTIONS SINCE THEN
     Route: 058
  12. ADBRY [Suspect]
     Active Substance: TRALOKINUMAB-LDRM
     Indication: Eczema
     Dosage: 2 INJECTIONS EVERY 3 WEEKS LAST INJECTION WAS 24-MAY-2024 AND HAD NO INJECTIONS SINCE THEN
     Route: 058

REACTIONS (9)
  - Injection site swelling [Unknown]
  - Asthenia [Unknown]
  - Disease recurrence [Unknown]
  - Dizziness [Recovered/Resolved]
  - Injection site pain [Unknown]
  - Injection site erythema [Unknown]
  - Fatigue [Recovered/Resolved]
  - Hypotension [Unknown]
  - Injection site pruritus [Unknown]

NARRATIVE: CASE EVENT DATE: 20240101
